FAERS Safety Report 6371764-5 (Version None)
Quarter: 2009Q3

REPORT INFORMATION
  Report Type: 
  Country: None (occurrence: None)
  Receive Date: 20090923
  Receipt Date: 20090917
  Transmission Date: 20100115
  Serious: Yes (Hospitalization, Other)
  Sender: FDA-Public Use
  Company Number: US-NOVOPROD-291893

PATIENT
  Sex: Female
  Weight: 45.351 kg

DRUGS (2)
  1. NOVOLOG [Suspect]
     Indication: TYPE 2 DIABETES MELLITUS
     Dosage: VARYING DOSES WITH MEALS BASED ON HER BLOOD SUGAR READING
     Route: 058
     Dates: start: 20000101
  2. LANTUS [Suspect]
     Indication: TYPE 2 DIABETES MELLITUS
     Dosage: 9 IU AROUND 7-7:45AM AND 4 IU IN THE EVENING

REACTIONS (1)
  - TRANSIENT ISCHAEMIC ATTACK [None]
